FAERS Safety Report 5829592-2 (Version None)
Quarter: 2008Q3

REPORT INFORMATION
  Report Type: 
  Country: None (occurrence: None)
  Receive Date: 20080731
  Receipt Date: 20080721
  Transmission Date: 20090109
  Serious: Yes (Hospitalization)
  Sender: FDA-Public Use
  Company Number: DE-PFIZER INC-2008049980

PATIENT
  Sex: Male
  Weight: 74 kg

DRUGS (3)
  1. LYRICA [Suspect]
     Indication: HERPES ZOSTER
     Route: 048
     Dates: start: 20080609, end: 20080612
  2. BRIVUDINE [Concomitant]
     Route: 048
     Dates: start: 20080519, end: 20080625
  3. NOVALGIN [Concomitant]
     Route: 048
     Dates: start: 20080519, end: 20080608

REACTIONS (1)
  - MOVEMENT DISORDER [None]
